FAERS Safety Report 23193004 (Version 1)
Quarter: 2023Q4

REPORT INFORMATION
  Report Type: Spontaneous
  Country: US (occurrence: US)
  Receive Date: 20231116
  Receipt Date: 20231116
  Transmission Date: 20240110
  Serious: No
  Sender: FDA-Public Use
  Company Number: US-002147023-NVSC2023US244387

PATIENT
  Age: 25 Year
  Sex: Female

DRUGS (1)
  1. KESIMPTA [Suspect]
     Active Substance: OFATUMUMAB
     Indication: Multiple sclerosis
     Dosage: 20 MG, QMO
     Route: 058
     Dates: start: 20231012

REACTIONS (4)
  - Muscle spasms [Recovering/Resolving]
  - Chromaturia [Recovering/Resolving]
  - Fatigue [Recovering/Resolving]
  - Upper respiratory tract infection [Recovering/Resolving]
